FAERS Safety Report 19687590 (Version 2)
Quarter: 2021Q4

REPORT INFORMATION
  Report Type: Other
  Country: GB (occurrence: GB)
  Receive Date: 20210812
  Receipt Date: 20211011
  Transmission Date: 20220304
  Serious: Yes (Hospitalization, Other)
  Sender: FDA-Public Use
  Company Number: None

PATIENT
  Age: 74 Year
  Sex: Female
  Weight: 84.45 kg

DRUGS (80)
  1. CARBOPLATIN [Suspect]
     Active Substance: CARBOPLATIN
     Indication: Small cell lung cancer extensive stage
     Dosage: 450 MILLIGRAM STARTED IN 24 NOV 2020
     Route: 065
  2. PREDNISOLONE [Suspect]
     Active Substance: PREDNISOLONE
     Indication: Product used for unknown indication
     Dosage: 1 PER DAY STARTED IN 08-JAN-2020 AND STOPPED IN 21-JAN-2020
     Route: 065
  3. PREDNISOLONE [Suspect]
     Active Substance: PREDNISOLONE
     Dosage: 1 PER DAY (STARTED IN 21-JAN-2020 AND STOPPED IN 25-JAN-2020)
     Route: 065
  4. DEXAMETHASONE [Suspect]
     Active Substance: DEXAMETHASONE
     Indication: Diarrhoea
     Dosage: 8 MILLIGRAM PER DAY STARTED IN 03-NOV-2020 AND STOPPED IN 03-NOV-2020
     Route: 065
  5. DEXAMETHASONE [Suspect]
     Active Substance: DEXAMETHASONE
     Indication: Prophylaxis
     Dosage: 8 MILLIGRAM, QD, STARTED IN 24-NOV-2020 AND STOPPED IN 24-NOV-2020
     Route: 065
  6. DEXAMETHASONE [Suspect]
     Active Substance: DEXAMETHASONE
     Dosage: 1 PER DAY (STARTED IN 25-NOV-2020 AND STOPPED IN 27-NOV-2020)
     Route: 065
  7. DEXAMETHASONE [Suspect]
     Active Substance: DEXAMETHASONE
     Dosage: 1 PER DAY UNSPECIFIED, (STARTED IN 15-DEC-2020 AND STOPPED IN 15-DEC-2020)
     Route: 065
  8. DEXAMETHASONE [Suspect]
     Active Substance: DEXAMETHASONE
     Dosage: 1 PER DAY, STARTED IN 16-DEC-2020 AND STOPPED IN 18-DEC-2020
     Route: 065
  9. DEXAMETHASONE [Suspect]
     Active Substance: DEXAMETHASONE
     Dosage: 1 PER DAY, STARTED IN 19-JAN-2021 AND STOPPED IN 20-JAN-2021
     Route: 065
  10. DEXAMETHASONE [Suspect]
     Active Substance: DEXAMETHASONE
     Dosage: 8 MILLIGRAM, (STARTED IN 10-MAR-2021 AND STOPPED IN 10-MAR-2021)
     Route: 065
  11. DEXAMETHASONE [Suspect]
     Active Substance: DEXAMETHASONE
     Dosage: 8 MILLIGRAM (STARTED IN 10-MAR-2021 AND STOPPED IN 10-MAR-2021)
     Route: 065
  12. ATEZOLIZUMAB [Suspect]
     Active Substance: ATEZOLIZUMAB
     Indication: Small cell lung cancer extensive stage
     Dosage: 1200 MILLIGRAM, EVERY 3 WEEKS, STARTED FROM ON 03 NOV 2020 AND 24/11/2020
     Route: 042
     Dates: end: 20201215
  13. ETOPOSIDE [Suspect]
     Active Substance: ETOPOSIDE
     Indication: Small cell lung cancer extensive stage
     Dosage: 200 MILLIGRAM, STARTED IN 24-NOV-2020
     Route: 065
  14. ETOPOSIDE [Suspect]
     Active Substance: ETOPOSIDE
     Dosage: 800 MILLIGRAM, STARTED IN 25-NOV-2020
     Route: 048
  15. ETOPOSIDE [Suspect]
     Active Substance: ETOPOSIDE
     Dosage: 2 PER DAY (STARTED IN 25-NOV-2020 AND STOPPED IN 26-NOV-2020)
     Route: 065
  16. ETOPOSIDE [Suspect]
     Active Substance: ETOPOSIDE
     Dosage: 2 PER DAY (STARTED IN 16-DEC-2020 AND STOPPED IN 17-DEC-2020)  UNK
     Route: 065
  17. ETOPOSIDE [Suspect]
     Active Substance: ETOPOSIDE
     Dosage: 600 MILLIGRAM, STARTED IN 10 FEB 2021
     Route: 048
  18. ADCAL [CALCIUM CARBONATE] [Concomitant]
     Indication: Product used for unknown indication
     Dosage: 2 PER DAY, EVERY 0.5 DAY (STARTED IN 24-NOV-2020)
     Route: 065
  19. ADCAL [CALCIUM CARBONATE] [Concomitant]
     Dosage: 2 PER DAY (BID) (STARTED IN 03-JAN-2021) AND STOPPED IN 24-JAN-2021)
     Route: 065
  20. ADCAL [CALCIUM CARBONATE] [Concomitant]
     Dosage: UNK PER DAY (STARTED ON 04 JAN 2021 TO 08 JAN 2021)
     Route: 065
  21. AMITRIPTYLINE [Concomitant]
     Active Substance: AMITRIPTYLINE
     Indication: Product used for unknown indication
     Dosage: UNK,STARTED IN 08-JAN-2021 AND STOPPED IN 21-JAN-2021)
     Route: 065
  22. AMITRIPTYLINE [Concomitant]
     Active Substance: AMITRIPTYLINE
     Dosage: 1 AS NECESSARY (PRN)
     Route: 065
  23. CALCIUM CARBONATE [Concomitant]
     Active Substance: CALCIUM CARBONATE
     Indication: Product used for unknown indication
     Dosage: 1 PER DAY (STARTED IN 04-JAN-2021 AND STOPPED IN 08-JAN-2021)
     Route: 065
  24. CALCIUM GLUCONATE [Concomitant]
     Active Substance: CALCIUM GLUCONATE
     Indication: Product used for unknown indication
     Dosage: 1 PER DAY (STARTED IN 26-DEC-2020 AND STOPPED IN 26-DEC-2020)
     Route: 065
  25. CHLORPHENIRAMINE MALEATE [Concomitant]
     Active Substance: CHLORPHENIRAMINE MALEATE
     Indication: Nausea
     Dosage: UNK
     Route: 065
  26. CHLORPHENIRAMINE MALEATE [Concomitant]
     Active Substance: CHLORPHENIRAMINE MALEATE
     Indication: Dyspnoea
     Dosage: 10 MILLIGRAM PER DAY (STARTED IN 24-NOV-2020 AND STOPPED IN 24-NOV-2020)
     Route: 065
  27. CHLORPHENIRAMINE MALEATE [Concomitant]
     Active Substance: CHLORPHENIRAMINE MALEATE
     Indication: Flushing
     Dosage: 10 MILLIGRAM PER DAY (STARTED IN 15-DEC-2020 AND STOPPED IN 15-DEC-2020)
     Route: 065
  28. CHLORPHENIRAMINE MALEATE [Concomitant]
     Active Substance: CHLORPHENIRAMINE MALEATE
     Dosage: UNK
     Route: 065
  29. COTRIMOXAZOLE [Concomitant]
     Active Substance: SULFAMETHOXAZOLE\TRIMETHOPRIM
     Indication: Product used for unknown indication
     Dosage: 1 PER DAY (STARTED IN 25-JAN-2021)
     Route: 065
  30. CHOLECALCIFEROL [Concomitant]
     Active Substance: CHOLECALCIFEROL
     Indication: Product used for unknown indication
     Dosage: 1 PER DAY (STARTED IN 22-JAN-2021 AND STOPPED IN 25-JAN-2021)
     Route: 065
  31. CREON [Concomitant]
     Active Substance: PANCRELIPASE AMYLASE\PANCRELIPASE LIPASE\PANCRELIPASE PROTEASE
     Indication: Product used for unknown indication
     Dosage: 1 THREE TIMES A DAY (STARTED IN 20-JAN-2021)
     Route: 065
  32. DALTEPARIN [Concomitant]
     Active Substance: DALTEPARIN
     Indication: Prophylaxis
     Dosage: 1 PER DAY (STARTED IN 19-JAN-2021 AND STOPPED IN 25-JAN-2021)
     Route: 065
  33. DENOSUMAB [Concomitant]
     Active Substance: DENOSUMAB
     Indication: Metastases to bone
     Dosage: 120 MILLIGRAM, ONCE A MONTH (STARTED IN 24-NOV-2020 AND STOPPED IN 24-NOV-2020)
     Route: 065
  34. DIHYDROCODEINE [Concomitant]
     Active Substance: DIHYDROCODEINE
     Indication: Pain
     Dosage: 1 PER AS NECESSARY (PRN)
     Route: 065
  35. DOMPERIDONE [Concomitant]
     Active Substance: DOMPERIDONE
     Indication: Prophylaxis
     Dosage: 1 PER NECESSARY (PRN) (STARTED IN 03-NOV-2020)
     Route: 065
  36. FIDAXOMICIN [Concomitant]
     Active Substance: FIDAXOMICIN
     Indication: Product used for unknown indication
     Dosage: 2 PER DAY (STARTED IN 26-JAN-2021 AND STOPPED IN 08-MAR-2021)
     Route: 065
  37. FILGRASTIM [Concomitant]
     Active Substance: FILGRASTIM
     Indication: Prophylaxis
     Dosage: 1 PER DAY (STARTED IN 28-NOV-2020 AND STOPPED IN 05-DEC-2020)
     Route: 065
  38. FILGRASTIM [Concomitant]
     Active Substance: FILGRASTIM
     Dosage: 1 PER DAY (STARTED IN 18-DEC-2020 AND STOPPED IN 26-DEC-2020)
     Route: 065
  39. FILGRASTIM [Concomitant]
     Active Substance: FILGRASTIM
     Dosage: 1 PER DAY (STARTED IN 26-DEC-2020 AND STOPPED IN 29-DEC-2020)
     Route: 065
  40. FOLIC ACID [Concomitant]
     Active Substance: FOLIC ACID
     Indication: Product used for unknown indication
     Dosage: 1 PER DAY (STARTED IN 23-JAN-2021)
     Route: 065
  41. HYDROCORTISONE SODIUM SUCCINATE [Concomitant]
     Active Substance: HYDROCORTISONE SODIUM SUCCINATE
     Indication: Premedication
     Dosage: 100 MILLIGRAM DAILY (STARTED IN 24 NOV 2020 AND STOPPED IN 24 NOV 2020 )
     Route: 065
  42. HYDROCORTISONE SODIUM SUCCINATE [Concomitant]
     Active Substance: HYDROCORTISONE SODIUM SUCCINATE
     Indication: Flushing
  43. LOPERAMIDE [Concomitant]
     Active Substance: LOPERAMIDE
     Indication: Diarrhoea
     Dosage: 1, PRN, STARTED IN 03-NOV-2020
     Route: 065
  44. LOPERAMIDE [Concomitant]
     Active Substance: LOPERAMIDE
     Dosage: UNK
     Route: 065
  45. MAGNESIUM [Concomitant]
     Active Substance: MAGNESIUM
     Indication: Product used for unknown indication
     Dosage: 3 PER DAY (STARTED IN 03-JAN-2021
     Route: 065
  46. MAGNESIUM SULFATE [Concomitant]
     Active Substance: MAGNESIUM SULFATE
     Indication: Hypomagnesaemia
     Dosage: 1 PER DAY (STARTED IN 18-JAN-2021 AND STOPPED IN 18-JAN-2021)
     Route: 065
  47. MAGNESIUM SULFATE [Concomitant]
     Active Substance: MAGNESIUM SULFATE
     Dosage: UNK, ON 26-DEC-2020
     Route: 065
  48. MEROPENEM [Concomitant]
     Active Substance: MEROPENEM
     Indication: Product used for unknown indication
     Dosage: 3 PER DAY (STARTED IN 26-DEC-2020 AND STOPPED IN 03-JAN-2021)
     Route: 065
  49. MEROPENEM [Concomitant]
     Active Substance: MEROPENEM
     Dosage: 3 PER DAY (STARTED IN 03-JAN-2021 AND STOPPED IN 04-JAN-2021)
     Route: 065
  50. METHYLPREDNISOLONE [Concomitant]
     Active Substance: METHYLPREDNISOLONE
     Indication: Product used for unknown indication
     Dosage: 1 PER DAY (STARTED IN 18-JAN-2021 AND STOPPED IN 18-JAN-2021)
     Route: 065
  51. METHYLPREDNISOLONE [Concomitant]
     Active Substance: METHYLPREDNISOLONE
     Indication: Diarrhoea
     Dosage: 1 PER DAY (STARTED IN 20-JAN-2021 AND STOPPED IN 20-JAN-2021)
     Route: 065
  52. METHYLPREDNISOLONE [Concomitant]
     Active Substance: METHYLPREDNISOLONE
     Dosage: 1 PER DAY (STARTED IN 22-JAN-2021 AND STOPPED IN 25-JAN-2021
     Route: 065
  53. OCTENISAN [ALLANTOIN;OCTENIDINE HYDROCHLORIDE] [Concomitant]
     Indication: Product used for unknown indication
     Dosage: 1 PER DAY, STARTED IN 03-JAN-2021
     Route: 065
  54. OMEPRAZOLE [Concomitant]
     Active Substance: OMEPRAZOLE
     Indication: Prophylaxis
     Dosage: 1 PER DAY, STARTED IN 03-JAN-2021
     Route: 065
  55. ONDANSETRON [Concomitant]
     Active Substance: ONDANSETRON
     Indication: Prophylaxis
     Dosage: EVERY 0.33 DAY
     Route: 065
  56. ONDANSETRON [Concomitant]
     Active Substance: ONDANSETRON
     Indication: Vomiting
     Dosage: 8 MILLIGRAM PER DAY, STARTED IN 24-NOV-2020 AND STOPPED IN 24-NOV-2020
     Route: 065
  57. ONDANSETRON [Concomitant]
     Active Substance: ONDANSETRON
     Dosage: 1, PRN, (STARTED IN 27-DEC-2020 AND STOPPED IN 08-JAN-2021)
     Route: 065
  58. ONDANSETRON [Concomitant]
     Active Substance: ONDANSETRON
     Dosage: UNK (STARTED IN 18-JAN-2021 AND STOPPED IN 22-JAN-2021
     Route: 065
  59. ONDANSETRON [Concomitant]
     Active Substance: ONDANSETRON
     Dosage: 1 PER DAY (STARTED IN 15-DEC-2020 AND STOPPED IN 15-DEC-2020)
     Route: 065
  60. ONDANSETRON [Concomitant]
     Active Substance: ONDANSETRON
     Dosage: 3 PER DAY, STARTED IN 22-DEC-2020
     Route: 065
  61. ACETAMINOPHEN [Concomitant]
     Active Substance: ACETAMINOPHEN
     Indication: Pain
     Dosage: 1, AS PER NECESSARY, PRN
     Route: 065
  62. SODIUM PHOSPHATE, MONOBASIC, ANHYDROUS [Concomitant]
     Active Substance: SODIUM PHOSPHATE, MONOBASIC, ANHYDROUS
     Indication: Hypophosphataemia
     Dosage: 2 PER DAY (STARTED IN 25-JAN-2021
     Route: 065
  63. SODIUM PHOSPHATE, MONOBASIC, ANHYDROUS [Concomitant]
     Active Substance: SODIUM PHOSPHATE, MONOBASIC, ANHYDROUS
     Dosage: 3 PER DAY (STARTED IN 03-JAN-2021 AND STOPPED IN 08-JAN-2021)
     Route: 065
  64. SODIUM PHOSPHATE, MONOBASIC, ANHYDROUS [Concomitant]
     Active Substance: SODIUM PHOSPHATE, MONOBASIC, ANHYDROUS
     Dosage: EVERY 0.33 DAYS, STARTED IN 08-JAN-2021
     Route: 065
  65. POTASSIUM CHLORIDE [Concomitant]
     Active Substance: POTASSIUM CHLORIDE
     Indication: Product used for unknown indication
     Dosage: UNK, EVERY 0.33 DAY (STARTED IN 04-JAN-2021)
     Route: 065
  66. SIMVASTATIN [Concomitant]
     Active Substance: SIMVASTATIN
     Indication: Hypercholesterolaemia
     Dosage: 1 PER DAY
     Route: 065
  67. SODIUM CHLORIDE [Concomitant]
     Active Substance: SODIUM CHLORIDE
     Indication: Nausea
     Dosage: UNK
     Route: 065
  68. SODIUM CHLORIDE [Concomitant]
     Active Substance: SODIUM CHLORIDE
     Indication: Flushing
     Dosage: 1 PER DAY (STARTED IN 24-NOV-2020 AND STOPPED IN 24-NOV-2020)
     Route: 065
  69. SODIUM CHLORIDE [Concomitant]
     Active Substance: SODIUM CHLORIDE
     Indication: Dyspnoea
     Dosage: UNK
     Route: 065
  70. VANCOMYCIN [Concomitant]
     Active Substance: VANCOMYCIN
     Indication: Product used for unknown indication
     Dosage: 1 PER FOUR TIMES A DAY (STARTED IN 18-JAN-2021 AND STOPPED IN 20-JAN-2021)
     Route: 065
  71. PHYTONADIONE [Concomitant]
     Active Substance: PHYTONADIONE
     Indication: Product used for unknown indication
     Dosage: UNK, STARTED IN 26 DEC 2020, BID
     Route: 065
  72. HYDROXOCOBALAMIN [Concomitant]
     Active Substance: HYDROXOCOBALAMIN
     Indication: Vitamin B12 deficiency
     Dosage: UNK
     Route: 065
  73. GRANULOCYTE COLONY-STIMULATING FACTOR NOS [Concomitant]
     Active Substance: GRANULOCYTE COLONY-STIMULATING FACTOR NOS
     Indication: Product used for unknown indication
     Dosage: UNK
     Route: 065
  74. POTASSIUM BICARBONATE\POTASSIUM CHLORIDE [Concomitant]
     Active Substance: POTASSIUM BICARBONATE\POTASSIUM CHLORIDE
     Indication: Product used for unknown indication
     Dosage: UNK
     Route: 065
  75. EMULSIFYING WAX;PARAFFIN SOFT;PARAFFIN, LIQUID [Concomitant]
     Indication: Product used for unknown indication
     Dosage: UNK, 2 PER DAY, STARTED IN 03 JAN 2021
     Route: 065
  76. AMOXICILLIN\CLAVULANATE POTASSIUM [Concomitant]
     Active Substance: AMOXICILLIN\CLAVULANATE POTASSIUM
     Indication: Product used for unknown indication
     Dosage: UNK (STARTED ON 07 JAN 2021)
     Route: 065
  77. CLOBETASOL PROPIONATE [Concomitant]
     Active Substance: CLOBETASOL PROPIONATE
     Indication: Product used for unknown indication
     Dosage: UNK, STARTED ON 04 JAN 2021 AND STOPPED ON 08 JAN 2021
     Route: 065
  78. NYSTATIN [Concomitant]
     Active Substance: NYSTATIN
     Indication: Product used for unknown indication
     Dosage: UNK, STARTED ON 03 JAN 2021 AND STOPPED ON 07 JAN 2021
     Route: 065
  79. ACYCLOVIR [Concomitant]
     Active Substance: ACYCLOVIR
     Indication: Product used for unknown indication
     Dosage: UNK (STARTED ON 05 JAN 2021 AND STOPPED ON 26 JAN 2021)
     Route: 065
  80. TRIMOVATE [Concomitant]
     Active Substance: CLOBETASONE BUTYRATE\NYSTATIN\OXYTETRACYCLINE CALCIUM
     Indication: Product used for unknown indication
     Dosage: UNK, STARTED ON 04-JAN-2021 AND STOPPED ON 09-JAN-2021
     Route: 065

REACTIONS (24)
  - Pancytopenia [Not Recovered/Not Resolved]
  - Enterocolitis [Recovered/Resolved]
  - Terminal ileitis [Not Recovered/Not Resolved]
  - Acute kidney injury [Recovered/Resolved]
  - Acute kidney injury [Not Recovered/Not Resolved]
  - Diarrhoea [Recovered/Resolved]
  - Hypoaesthesia [Not Recovered/Not Resolved]
  - Condition aggravated [Not Recovered/Not Resolved]
  - Dizziness [Not Recovered/Not Resolved]
  - Fatigue [Not Recovered/Not Resolved]
  - Alopecia [Not Recovered/Not Resolved]
  - Dyspnoea [Recovered/Resolved]
  - Thrombocytopenia [Recovered/Resolved]
  - Anaemia [Recovered/Resolved]
  - Nausea [Recovered/Resolved]
  - Pancreatitis chronic [Not Recovered/Not Resolved]
  - Vomiting [Recovered/Resolved]
  - Hypokalaemia [Recovered/Resolved]
  - Flushing [Recovered/Resolved]
  - Flushing [Recovered/Resolved]
  - Clostridium difficile infection [Recovered/Resolved]
  - COVID-19 pneumonia [Recovered/Resolved]
  - Neutropenic sepsis [Recovered/Resolved]
  - Off label use [Unknown]

NARRATIVE: CASE EVENT DATE: 20201120
